FAERS Safety Report 5342777-7 (Version None)
Quarter: 2007Q2

REPORT INFORMATION
  Report Type: 
  Country: None (occurrence: None)
  Receive Date: 20070601
  Receipt Date: 20070521
  Transmission Date: 20071010
  Serious: Yes (Hospitalization)
  Sender: FDA-Public Use
  Company Number: FR-PFIZER INC-2007041983

PATIENT
  Age: 78 Year
  Sex: Female

DRUGS (6)
  1. TAHOR [Suspect]
     Route: 048
  2. ATENOLOL [Suspect]
     Route: 048
  3. ASPIRIN [Suspect]
     Dosage: DAILY DOSE:160MG
     Route: 048
  4. ESOMEPRAZOLE MAGNESIUM [Suspect]
     Route: 048
  5. CLOPIDOGREL [Suspect]
     Route: 048
     Dates: start: 20061115, end: 20070115
  6. RAMIPRIL [Concomitant]
     Dates: start: 20061115, end: 20070115

REACTIONS (2)
  - COUGH [None]
  - EOSINOPHILIC PNEUMONIA [None]
